FAERS Safety Report 6340256-1 (Version None)
Quarter: 2009Q3

REPORT INFORMATION
  Report Type: 
  Country: None (occurrence: None)
  Receive Date: 20090902
  Receipt Date: 20090821
  Transmission Date: 20100115
  Serious: Yes (Hospitalization)
  Sender: FDA-Public Use
  Company Number: 310001M09NLD

PATIENT
  Age: 34 Year
  Sex: Female
  Weight: 70 kg

DRUGS (2)
  1. GONAL-F [Suspect]
     Dosage: 600 IU
     Dates: start: 20080101
  2. SUMARTRIPTAN (SUMARTRIPTAN) [Concomitant]

REACTIONS (1)
  - ENDOMETRIOSIS [None]
